FAERS Safety Report 18705478 (Version 1)
Quarter: 2021Q1

REPORT INFORMATION
  Report Type: Spontaneous
  Country: IT (occurrence: IT)
  Receive Date: 20210106
  Receipt Date: 20210106
  Transmission Date: 20210419
  Serious: Yes (Other)
  Sender: FDA-Public Use
  Company Number: IT-SUN PHARMACEUTICAL INDUSTRIES LTD-2020RR-274301

PATIENT
  Age: 15 Year
  Sex: Female
  Weight: 71 kg

DRUGS (5)
  1. PARACETAMOL [Suspect]
     Active Substance: ACETAMINOPHEN
     Indication: PRODUCT USED FOR UNKNOWN INDICATION
     Dosage: 1000 MILLIGRAM, 12 TABLET
     Route: 048
     Dates: start: 20201117, end: 20201117
  2. IMODIUM [Suspect]
     Active Substance: LOPERAMIDE HYDROCHLORIDE
     Indication: PRODUCT USED FOR UNKNOWN INDICATION
     Dosage: UNSPECIFIED QUANTITY ()
     Route: 048
     Dates: start: 20201117, end: 20201117
  3. ACETYLSALICYLIC ACID [Suspect]
     Active Substance: ASPIRIN
     Indication: PRODUCT USED FOR UNKNOWN INDICATION
     Dosage: 500 MILLIGRAM, TOOK 10 TABLETS
     Route: 048
     Dates: start: 20201117, end: 20201117
  4. CETIRIZINE [Suspect]
     Active Substance: CETIRIZINE HYDROCHLORIDE
     Indication: PRODUCT USED FOR UNKNOWN INDICATION
     Dosage: TOOK 10 TABLETS ()
     Route: 048
     Dates: start: 20201117, end: 20201117
  5. ASPRIN [Suspect]
     Active Substance: ASPIRIN
     Indication: PRODUCT USED FOR UNKNOWN INDICATION
     Dosage: 2 GRAM, UNK
     Route: 048
     Dates: start: 20201117, end: 20201117

REACTIONS (5)
  - Vomiting [Unknown]
  - Intentional self-injury [Unknown]
  - Intentional overdose [Recovered/Resolved]
  - Toxicity to various agents [Unknown]
  - Sluggishness [Unknown]

NARRATIVE: CASE EVENT DATE: 20201117
